FAERS Safety Report 14043994 (Version 1)
Quarter: 2017Q4

REPORT INFORMATION
  Report Type: Spontaneous
  Country: BR (occurrence: BR)
  Receive Date: 20171004
  Receipt Date: 20171004
  Transmission Date: 20180321
  Serious: Yes (Hospitalization, Other)
  Sender: FDA-Public Use
  Company Number: BR-ABBVIE-17P-020-2120310-00

PATIENT
  Age: 70 Year
  Sex: Male
  Weight: 70 kg

DRUGS (14)
  1. DEPAKOTE ER [Suspect]
     Active Substance: DIVALPROEX SODIUM
     Indication: MOOD ALTERED
     Route: 048
  2. LAMOTRIGINE. [Concomitant]
     Active Substance: LAMOTRIGINE
     Indication: MOOD ALTERED
     Route: 048
  3. PRAMIPEXOLE. [Concomitant]
     Active Substance: PRAMIPEXOLE
     Indication: PARKINSON^S DISEASE
     Route: 048
  4. DEPAKOTE ER [Suspect]
     Active Substance: DIVALPROEX SODIUM
     Indication: MOOD ALTERED
  5. LASIX [Concomitant]
     Active Substance: FUROSEMIDE
     Indication: DIURETIC THERAPY
     Route: 048
  6. ALDACTONE [Concomitant]
     Active Substance: SPIRONOLACTONE
     Indication: DIURETIC THERAPY
     Route: 048
  7. DEPAKOTE ER [Suspect]
     Active Substance: DIVALPROEX SODIUM
     Indication: DEPRESSION
  8. MAREVAN [Concomitant]
     Active Substance: WARFARIN SODIUM
     Indication: ANTICOAGULANT THERAPY
     Dosage: (0.5 A TABLET 3 TIMES A WEEK/ 1 TABLET 4 TIMES A WEEK)
     Route: 048
  9. LAMOTRIGINE. [Concomitant]
     Active Substance: LAMOTRIGINE
     Indication: PSYCHOTHERAPY
  10. CIPROFIBRATE [Concomitant]
     Active Substance: CIPROFIBRATE
     Indication: BLOOD TRIGLYCERIDES
     Route: 048
  11. ZOPIX [Concomitant]
     Indication: PSYCHOTHERAPY
     Route: 048
  12. CARVEDILOL. [Concomitant]
     Active Substance: CARVEDILOL
     Indication: CARDIAC DISORDER
     Route: 048
  13. TEGRETOL [Concomitant]
     Active Substance: CARBAMAZEPINE
     Indication: CONVULSION PROPHYLAXIS
     Route: 048
  14. PROLOPA [Concomitant]
     Active Substance: BENSERAZIDE\LEVODOPA
     Indication: PARKINSON^S DISEASE
     Dosage: FORM STRENGTH: ^100/25^
     Route: 048

REACTIONS (8)
  - Secretion discharge [Recovered/Resolved]
  - Parkinson^s disease [Unknown]
  - Respiratory tract haemorrhage [Recovered/Resolved]
  - Pneumonia [Recovering/Resolving]
  - Aggression [Recovered/Resolved]
  - Extra dose administered [Unknown]
  - Gout [Unknown]
  - Wheezing [Recovering/Resolving]

NARRATIVE: CASE EVENT DATE: 2016
